FAERS Safety Report 7701963-9 (Version None)
Quarter: 2011Q3

REPORT INFORMATION
  Report Type: 
  Country: None (occurrence: None)
  Receive Date: 20110822
  Receipt Date: 20110810
  Transmission Date: 20111222
  Serious: Yes (Other)
  Sender: FDA-Public Use
  Company Number: PHHY2011BR73237

PATIENT
  Sex: Female

DRUGS (4)
  1. ZELMAC [Suspect]
     Indication: IRRITABLE BOWEL SYNDROME
     Dosage: 6 MG, BID
     Route: 048
     Dates: start: 20040101
  2. CYMBALTA [Concomitant]
     Indication: DEPRESSION
     Dosage: 1 DF, QD
     Route: 048
  3. CLONAZEPAM [Concomitant]
     Indication: ANXIETY
     Dosage: 6 DRP, QD
  4. PANTOPRAZOLE [Concomitant]
     Dosage: 40 MG, BID

REACTIONS (4)
  - DEPRESSION [None]
  - ABDOMINAL PAIN [None]
  - VOMITING [None]
  - FLATULENCE [None]
